FAERS Safety Report 17188172 (Version 1)
Quarter: 2019Q4

REPORT INFORMATION
  Report Type: Spontaneous
  Country: DK (occurrence: DK)
  Receive Date: 20191221
  Receipt Date: 20191221
  Transmission Date: 20200122
  Serious: Yes (Disabling)
  Sender: FDA-Public Use
  Company Number: DK-TEVA-2019-DK-1154631

PATIENT
  Age: 76 Year
  Sex: Male

DRUGS (1)
  1. EZETIMIB ACTAVIS 10 MG TABLETT [Suspect]
     Active Substance: EZETIMIBE
     Indication: HYPERLIPIDAEMIA
     Dosage: 10 MG
     Route: 048
     Dates: start: 20190826, end: 20191021

REACTIONS (4)
  - Muscular weakness [Recovered/Resolved]
  - Bursitis [Recovered/Resolved]
  - Muscle strain [Recovered/Resolved]
  - Product substitution issue [Recovered/Resolved]

NARRATIVE: CASE EVENT DATE: 20190904
